FAERS Safety Report 18335155 (Version 3)
Quarter: 2021Q4

REPORT INFORMATION
  Report Type: Spontaneous
  Country: US (occurrence: None)
  Receive Date: 20201001
  Receipt Date: 20211119
  Transmission Date: 20220303
  Serious: Yes (Other)
  Sender: FDA-Public Use
  Company Number: 2020SF23439

PATIENT
  Age: 17977 Day
  Sex: Male
  Weight: 136.5 kg

DRUGS (40)
  1. FARXIGA [Suspect]
     Active Substance: DAPAGLIFLOZIN PROPANEDIOL
     Indication: Type 2 diabetes mellitus
     Route: 048
     Dates: start: 20140721, end: 20170125
  2. FARXIGA [Suspect]
     Active Substance: DAPAGLIFLOZIN PROPANEDIOL
     Indication: Weight decreased
     Route: 048
     Dates: start: 20140721, end: 20170125
  3. FARXIGA [Suspect]
     Active Substance: DAPAGLIFLOZIN PROPANEDIOL
     Indication: Blood pressure decreased
     Route: 048
     Dates: start: 20140721, end: 20170125
  4. FARXIGA [Suspect]
     Active Substance: DAPAGLIFLOZIN PROPANEDIOL
     Indication: Type 2 diabetes mellitus
     Route: 048
     Dates: start: 20160128
  5. FARXIGA [Suspect]
     Active Substance: DAPAGLIFLOZIN PROPANEDIOL
     Indication: Weight decreased
     Route: 048
     Dates: start: 20160128
  6. FARXIGA [Suspect]
     Active Substance: DAPAGLIFLOZIN PROPANEDIOL
     Indication: Blood pressure decreased
     Route: 048
     Dates: start: 20160128
  7. CLONAZEPAM [Concomitant]
     Active Substance: CLONAZEPAM
     Dates: start: 20140205
  8. VENLAFAXINE [Concomitant]
     Active Substance: VENLAFAXINE HYDROCHLORIDE
     Dates: start: 20140206
  9. ASPIRIN [Concomitant]
     Active Substance: ASPIRIN
     Dates: start: 20140205
  10. LISINOPRIL [Concomitant]
     Active Substance: LISINOPRIL
     Dates: start: 20140205
  11. DANTROLENE SODIUM [Concomitant]
     Active Substance: DANTROLENE SODIUM
     Dates: start: 20140219
  12. RISPERIDONE [Concomitant]
     Active Substance: RISPERIDONE
     Dates: start: 20140219
  13. HYDROCODON-ACETAMINOPHN [Concomitant]
     Dates: start: 20140206
  14. GUANFACINE [Concomitant]
     Active Substance: GUANFACINE
     Dates: start: 20140208
  15. METFORMIN [Concomitant]
     Active Substance: METFORMIN HYDROCHLORIDE
     Dates: start: 20140222
  16. TRADJENTA [Concomitant]
     Active Substance: LINAGLIPTIN
     Dates: start: 20140502
  17. JENTADUETO [Concomitant]
     Active Substance: LINAGLIPTIN\METFORMIN HYDROCHLORIDE
     Dates: start: 20140711
  18. LYRICA [Concomitant]
     Active Substance: PREGABALIN
     Dates: start: 20150313
  19. CLONIDINE [Concomitant]
     Active Substance: CLONIDINE
     Dates: start: 20150601
  20. FERROUS SULFATE [Concomitant]
     Active Substance: FERROUS SULFATE
     Dates: start: 20160131
  21. HUMALOG [Concomitant]
     Active Substance: INSULIN LISPRO
     Dates: start: 20160129
  22. VANCOMYCIN [Concomitant]
     Active Substance: VANCOMYCIN
     Dates: start: 20160131
  23. ATIVAN [Concomitant]
     Active Substance: LORAZEPAM
     Dates: start: 20160129
  24. AMBIEN [Concomitant]
     Active Substance: ZOLPIDEM TARTRATE
     Dates: start: 20160129
  25. ZOFRAN [Concomitant]
     Active Substance: ONDANSETRON HYDROCHLORIDE
     Dates: start: 20160129
  26. CEFAZOLIN [Concomitant]
     Active Substance: CEFAZOLIN
     Dates: start: 20140205
  27. METRONIDAZOLE [Concomitant]
     Active Substance: METRONIDAZOLE
     Dates: start: 20160118
  28. LOVENOX [Concomitant]
     Active Substance: ENOXAPARIN SODIUM
     Dates: start: 20150418
  29. NOREPINEPHRINE [Concomitant]
     Active Substance: NOREPINEPHRINE
     Dates: start: 20150407
  30. CLINDAMYCIN [Concomitant]
     Active Substance: CLINDAMYCIN
     Dates: start: 20150409
  31. MEROPENEM [Concomitant]
     Active Substance: MEROPENEM
     Dates: start: 20150409
  32. PEPCID [Concomitant]
     Active Substance: FAMOTIDINE
     Dates: start: 20150409
  33. MIDAZOLAM [Concomitant]
     Active Substance: MIDAZOLAM
     Dates: start: 20150409
  34. ZOSYN [Concomitant]
     Active Substance: PIPERACILLIN SODIUM\TAZOBACTAM SODIUM
     Dates: start: 20150409
  35. AMIODARONE [Concomitant]
     Active Substance: AMIODARONE
     Dates: start: 20150408
  36. HYDROMORPHONE [Concomitant]
     Active Substance: HYDROMORPHONE
     Dates: start: 20150411
  37. METFORMIN HYDROCHLORIDE [Concomitant]
     Active Substance: METFORMIN HYDROCHLORIDE
  38. SULFAMETHOXAZOLE [Concomitant]
     Active Substance: SULFAMETHOXAZOLE
  39. ACETAMINOPHEN [Concomitant]
     Active Substance: ACETAMINOPHEN
  40. OXYCODONE [Concomitant]
     Active Substance: OXYCODONE

REACTIONS (12)
  - Fournier^s gangrene [Unknown]
  - Sepsis [Unknown]
  - Septic shock [Unknown]
  - Pancreatitis necrotising [Unknown]
  - Acute respiratory failure [Unknown]
  - Perirectal abscess [Unknown]
  - Wound infection [Unknown]
  - Cellulitis [Unknown]
  - Respiratory failure [Unknown]
  - Acute kidney injury [Unknown]
  - Renal tubular necrosis [Unknown]
  - Renal failure [Unknown]

NARRATIVE: CASE EVENT DATE: 20150406
